FAERS Safety Report 13065697 (Version 1)
Quarter: 2016Q4

REPORT INFORMATION
  Report Type: Report from Study
  Country: None (occurrence: CA)
  Receive Date: 20161227
  Receipt Date: 20161227
  Transmission Date: 20170207
  Serious: Yes (Hospitalization, Other)
  Sender: FDA-Public Use
  Company Number: CA-ABBVIE-13P-028-1088950-00

PATIENT
  Age: 92 Year
  Sex: Male

DRUGS (3)
  1. LUPRON DEPOT [Suspect]
     Active Substance: LEUPROLIDE ACETATE
     Indication: PROSTATE CANCER
     Route: 030
     Dates: start: 20120509
  2. LASIX [Suspect]
     Active Substance: FUROSEMIDE
     Indication: CARDIAC FAILURE CONGESTIVE
     Dosage: 40; UNITS NOT SPECIFIED
     Route: 042
  3. LASIX [Suspect]
     Active Substance: FUROSEMIDE
     Dosage: REDUCED TO 40MG
     Route: 048

REACTIONS (19)
  - Cardiac failure congestive [Recovered/Resolved]
  - Bundle branch block right [Unknown]
  - Hypotension [Unknown]
  - Hypovolaemia [Unknown]
  - Joint swelling [Unknown]
  - Pleural effusion [Unknown]
  - Oxygen saturation decreased [Unknown]
  - Blood albumin decreased [Unknown]
  - Asthenia [Recovered/Resolved]
  - Brain natriuretic peptide increased [Unknown]
  - Blood creatinine increased [Unknown]
  - Activities of daily living impaired [Unknown]
  - Oedema peripheral [Recovered/Resolved]
  - Dyspnoea [Recovered/Resolved]
  - Pneumonia [Unknown]
  - Chest X-ray abnormal [Unknown]
  - Gait disturbance [Unknown]
  - White blood cell count increased [Recovered/Resolved]
  - Atrial fibrillation [Unknown]

NARRATIVE: CASE EVENT DATE: 20130415
